FAERS Safety Report 26027323 (Version 1)
Quarter: 2025Q4

REPORT INFORMATION
  Report Type: Spontaneous
  Country: GB (occurrence: GB)
  Receive Date: 20251111
  Receipt Date: 20251111
  Transmission Date: 20260117
  Serious: Yes (Other)
  Sender: SANDOZ
  Company Number: None

PATIENT
  Age: 24 Year
  Sex: Male
  Weight: 60 kg

DRUGS (1)
  1. CLARITHROMYCIN [Suspect]
     Active Substance: CLARITHROMYCIN
     Indication: Streptococcal infection
     Dosage: 500 MG TAKEN TWICE A DAY
     Route: 065
     Dates: start: 20251003

REACTIONS (5)
  - Euphoric mood [Not Recovered/Not Resolved]
  - Dissociation [Not Recovered/Not Resolved]
  - Irritability [Not Recovered/Not Resolved]
  - Feeling jittery [Not Recovered/Not Resolved]
  - Feeling abnormal [Not Recovered/Not Resolved]

NARRATIVE: CASE EVENT DATE: 20251104
